FAERS Safety Report 20581280 (Version 1)
Quarter: 2022Q1

REPORT INFORMATION
  Report Type: Spontaneous
  Country: US (occurrence: US)
  Receive Date: 20220311
  Receipt Date: 20220311
  Transmission Date: 20220423
  Serious: No
  Sender: FDA-Public Use
  Company Number: US-ELI_LILLY_AND_COMPANY-US202203005120

PATIENT

DRUGS (1)
  1. TRULICITY [Suspect]
     Active Substance: DULAGLUTIDE
     Indication: Weight increased
     Dosage: 3 MG, UNKNOWN
     Route: 065
     Dates: start: 202202

REACTIONS (5)
  - Vomiting [Unknown]
  - Nausea [Unknown]
  - Dyspepsia [Unknown]
  - Eructation [Unknown]
  - Off label use [Unknown]
